FAERS Safety Report 5274115-2 (Version None)
Quarter: 2007Q1

REPORT INFORMATION
  Report Type: 
  Country: None (occurrence: None)
  Receive Date: 20070323
  Receipt Date: 20070320
  Transmission Date: 20070707
  Serious: Yes (Hospitalization)
  Sender: FDA-Public Use
  Company Number: SE-BRISTOL-MYERS SQUIBB COMPANY-13720065

PATIENT
  Sex: Male

DRUGS (3)
  1. ABILIFY [Suspect]
     Dosage: INITIAL DOSAGE WAS 10MG
     Dates: start: 20061201
  2. ABILIFY [Suspect]
     Dates: start: 20060201
  3. ZOLOFT [Concomitant]

REACTIONS (3)
  - APNOEA [None]
  - EMOTIONAL DISTRESS [None]
  - INSOMNIA [None]
